FAERS Safety Report 17432551 (Version 7)
Quarter: 2020Q4

REPORT INFORMATION
  Report Type: Report from Study
  Country: US (occurrence: US)
  Receive Date: 20200218
  Receipt Date: 20201117
  Transmission Date: 20210113
  Serious: Yes (Hospitalization, Disabling, Other)
  Sender: FDA-Public Use
  Company Number: NVSC2020US035505

PATIENT
  Age: 61 Year
  Sex: Male

DRUGS (4)
  1. ENTRESTO [Suspect]
     Active Substance: SACUBITRIL\VALSARTAN
     Indication: PRODUCT USED FOR UNKNOWN INDICATION
     Dosage: 100 MG (49 MG SACUBITRIL/51 MG VALSARTAN), BID
     Route: 048
     Dates: start: 20200205
  2. ENTRESTO [Suspect]
     Active Substance: SACUBITRIL\VALSARTAN
     Dosage: 100 MG (49 MG SACUBITRIL/51 MG VALSARTAN), BID
     Route: 048
  3. ENTRESTO [Suspect]
     Active Substance: SACUBITRIL\VALSARTAN
     Dosage: 50 MG (24 MG SACUBITRIL/26 MG VALSARTAN), BID
     Route: 048
  4. FUROSEMIDE. [Concomitant]
     Active Substance: FUROSEMIDE
     Indication: PRODUCT USED FOR UNKNOWN INDICATION
     Dosage: UNK UNK, UNKNOWN
     Route: 065

REACTIONS (17)
  - Blood pressure abnormal [Not Recovered/Not Resolved]
  - Dizziness [Not Recovered/Not Resolved]
  - Renal impairment [Recovering/Resolving]
  - Fluid retention [Recovering/Resolving]
  - Arthralgia [Not Recovered/Not Resolved]
  - Staphylococcal infection [Unknown]
  - Abdominal distension [Recovering/Resolving]
  - Atrial fibrillation [Recovered/Resolved]
  - Neck pain [Not Recovered/Not Resolved]
  - Therapeutic response unexpected [Recovering/Resolving]
  - Pain [Unknown]
  - Weight decreased [Unknown]
  - Weight increased [Recovering/Resolving]
  - Fatigue [Not Recovered/Not Resolved]
  - Asthenia [Unknown]
  - Oliguria [Unknown]
  - Gait disturbance [Recovered/Resolved with Sequelae]

NARRATIVE: CASE EVENT DATE: 20200205
